FAERS Safety Report 9013103 (Version 3)
Quarter: 2013Q1

REPORT INFORMATION
  Report Type: Report from Study
  Country: US (occurrence: US)
  Receive Date: 20130114
  Receipt Date: 20130329
  Transmission Date: 20140127
  Serious: No
  Sender: FDA-Public Use
  Company Number: US-VERTEX PHARMACEUTICALS INC.-2013-000509

PATIENT
  Age: 63 Year
  Sex: Male
  Weight: 70 kg

DRUGS (7)
  1. VX-950 (TELAPREVIR) [Suspect]
     Indication: HEPATITIS C
     Dosage: 750 MG, TID
     Route: 048
  2. PEGASYS [Suspect]
     Indication: HEPATITIS C
     Dosage: 180 ?G, UNK
     Route: 058
  3. RIBAVIRIN [Suspect]
     Indication: HEPATITIS C
     Dosage: 200 MG, UNK
     Route: 048
  4. LEFLUNOMIDE [Concomitant]
     Indication: ARTHRITIS
     Dosage: 20 MG, UNK
  5. METFORMIN [Concomitant]
     Indication: DIABETES MELLITUS
     Dosage: 500 MG, UNK
  6. ASPIRIN [Concomitant]
     Indication: PROPHYLAXIS
     Dosage: 81 MG, UNK
  7. SAW PALAMETTO [Concomitant]
     Indication: PROPHYLAXIS

REACTIONS (9)
  - White blood cell count decreased [Unknown]
  - Insomnia [Unknown]
  - Injection site erythema [Unknown]
  - Fatigue [Unknown]
  - Haemorrhoids [Unknown]
  - Anorectal discomfort [Unknown]
  - Diarrhoea [Unknown]
  - Anal pruritus [Unknown]
  - Nausea [Unknown]
